FAERS Safety Report 7470205-4 (Version None)
Quarter: 2011Q2

REPORT INFORMATION
  Report Type: 
  Country: None (occurrence: None)
  Receive Date: 20110506
  Receipt Date: 20110506
  Transmission Date: 20111010
  Serious: No
  Sender: FDA-Public Use
  Company Number: None

PATIENT
  Sex: Female

DRUGS (1)
  1. ATRIPLA [Suspect]
     Dosage: TAKE 1 TABLET BY MOUTH EVERY DAY PO
     Route: 048

REACTIONS (4)
  - RASH [None]
  - PRURITUS [None]
  - BLISTER [None]
  - SCAB [None]
